FAERS Safety Report 9071883 (Version 3)
Quarter: 2013Q1

REPORT INFORMATION
  Report Type: Spontaneous
  Country: CA (occurrence: CA)
  Receive Date: 20130129
  Receipt Date: 20130301
  Transmission Date: 20140127
  Serious: Yes (Other)
  Sender: FDA-Public Use
  Company Number: PHHY2013CA003973

PATIENT
  Age: 87 Year
  Sex: Female

DRUGS (1)
  1. RHO-NITRO [Suspect]

REACTIONS (4)
  - Pharyngeal oedema [Recovered/Resolved]
  - Angina pectoris [Unknown]
  - Dyspnoea [Recovered/Resolved]
  - Increased upper airway secretion [Recovered/Resolved]
